FAERS Safety Report 9766745 (Version 1)
Quarter: 2013Q4

REPORT INFORMATION
  Report Type: Spontaneous
  Country: RO (occurrence: RO)
  Receive Date: 20131217
  Receipt Date: 20131217
  Transmission Date: 20140711
  Serious: Yes (Hospitalization)
  Sender: FDA-Public Use
  Company Number: RO-TEVA-450625ISR

PATIENT
  Age: 55 Year
  Sex: Female

DRUGS (6)
  1. INDAPAMIDE [Suspect]
     Indication: HYPERTENSION
     Dosage: SELF-ADMINISTERED 2 TABLETS/D IN 10D PRIOR TO ADMISSION
     Route: 065
  2. ENALAPRIL [Concomitant]
     Route: 065
  3. ZOLPIDEM [Concomitant]
     Route: 065
  4. MIRTAZAPINE [Concomitant]
     Route: 065
  5. QUETIAPINE [Concomitant]
     Route: 065
  6. METFORMIN [Concomitant]
     Route: 065

REACTIONS (1)
  - Hyponatraemic encephalopathy [Recovered/Resolved]
